FAERS Safety Report 9456578 (Version 3)
Quarter: 2014Q3

REPORT INFORMATION
  Report Type: Spontaneous
  Country: DK (occurrence: DK)
  Receive Date: 20130813
  Receipt Date: 20140904
  Transmission Date: 20150326
  Serious: Yes (Hospitalization)
  Sender: FDA-Public Use
  Company Number: PHHY2013DK084664

PATIENT
  Age: 16 Year
  Sex: Female
  Weight: 63 kg

DRUGS (1)
  1. GESTONETTE [Suspect]
     Active Substance: ETHINYL ESTRADIOL\GESTODENE
     Indication: CONTRACEPTION
     Dosage: 1 DF, QD
     Route: 048
     Dates: start: 201110, end: 20130201

REACTIONS (7)
  - Urticaria [Recovered/Resolved]
  - Abdominal pain [Recovered/Resolved]
  - Gastric dilatation [Recovered/Resolved]
  - Hypersensitivity [Recovered/Resolved]
  - Diarrhoea [Recovered/Resolved]
  - Food allergy [Recovered/Resolved]
  - Abdominal pain upper [Recovered/Resolved]

NARRATIVE: CASE EVENT DATE: 201201
